FAERS Safety Report 11601381 (Version 1)
Quarter: 2015Q4

REPORT INFORMATION
  Report Type: Spontaneous
  Country: US (occurrence: US)
  Receive Date: 20151006
  Receipt Date: 20151006
  Transmission Date: 20160304
  Serious: No
  Sender: FDA-Public Use
  Company Number: US-AMGEN-USASP2015025154

PATIENT
  Age: 70 Year
  Sex: Female

DRUGS (2)
  1. PROLIA [Suspect]
     Active Substance: DENOSUMAB
     Indication: OSTEOPOROSIS POSTMENOPAUSAL
     Dosage: UNK
     Route: 065
  2. DOXYCLINE                          /00055701/ [Concomitant]
     Indication: ROSACEA
     Dosage: UNK

REACTIONS (3)
  - Myalgia [Unknown]
  - Arthralgia [Unknown]
  - Limb discomfort [Unknown]
